FAERS Safety Report 7325870-9 (Version None)
Quarter: 2011Q1

REPORT INFORMATION
  Report Type: 
  Country: None (occurrence: None)
  Receive Date: 20110302
  Receipt Date: 20110224
  Transmission Date: 20110831
  Serious: Yes (Hospitalization, Other)
  Sender: FDA-Public Use
  Company Number: US-PFIZER INC-2010145004

PATIENT
  Sex: Male

DRUGS (3)
  1. CHANTIX [Suspect]
     Indication: SMOKING CESSATION THERAPY
     Dosage: 0.5 MG; 1.0 MG
     Route: 048
     Dates: start: 20071011
  2. CHANTIX [Suspect]
     Dosage: 1.0 MG, CONTINUING PACK
     Dates: start: 20090312, end: 20090927
  3. ATIVAN [Concomitant]
     Indication: ANXIETY
     Dosage: UNK
     Dates: start: 20060101

REACTIONS (8)
  - DRUG DEPENDENCE [None]
  - ANXIETY [None]
  - DEPRESSION [None]
  - STRESS [None]
  - SUICIDE ATTEMPT [None]
  - MULTIPLE DRUG OVERDOSE [None]
  - ALCOHOLISM [None]
  - AGGRESSION [None]
